FAERS Safety Report 23510361 (Version 6)
Quarter: 2024Q4

REPORT INFORMATION
  Report Type: Spontaneous
  Country: CA (occurrence: CA)
  Receive Date: 20240211
  Receipt Date: 20241028
  Transmission Date: 20250115
  Serious: Yes (Other)
  Sender: CELLTRION
  Company Number: CA-CELLTRION INC.-2024CA003304

PATIENT

DRUGS (5)
  1. INFLECTRA [Suspect]
     Active Substance: INFLIXIMAB-DYYB
     Indication: Crohn^s disease
     Dosage: 400 MG, INDUCTION W 0,2,6 THEN EVERY 8 WEEKS
     Route: 042
     Dates: start: 20220920, end: 20220920
  2. INFLECTRA [Suspect]
     Active Substance: INFLIXIMAB-DYYB
     Indication: Cheilitis granulomatosa
     Dosage: 500 MG, INDUCTION W 0,2,6 THEN EVERY 8 WEEKS
     Route: 042
     Dates: start: 20221011
  3. INFLECTRA [Suspect]
     Active Substance: INFLIXIMAB-DYYB
     Dosage: 500 MG, INDUCTION W 0,2,6 THEN EVERY 8 WEEKS
     Route: 042
     Dates: start: 20240130
  4. INFLECTRA [Suspect]
     Active Substance: INFLIXIMAB-DYYB
     Dosage: 500 MG, INDUCTION W 2,6 THEN EVERY 8 WEEKS
     Route: 042
     Dates: start: 20240723
  5. INFLECTRA [Suspect]
     Active Substance: INFLIXIMAB-DYYB
     Dosage: 500 MG, INDUCTION W 2,6 THEN EVERY 8 WEEKS
     Route: 042
     Dates: start: 20240917, end: 20240917

REACTIONS (6)
  - Haematochezia [Recovered/Resolved]
  - Fatigue [Recovering/Resolving]
  - Skin disorder [Not Recovered/Not Resolved]
  - Malaise [Unknown]
  - Dyspnoea [Unknown]
  - Off label use [Unknown]

NARRATIVE: CASE EVENT DATE: 20240101
